FAERS Safety Report 17237228 (Version 1)
Quarter: 2020Q1

REPORT INFORMATION
  Report Type: Spontaneous
  Country: US (occurrence: US)
  Receive Date: 20200106
  Receipt Date: 20200106
  Transmission Date: 20200409
  Serious: Yes (Hospitalization)
  Sender: FDA-Public Use
  Company Number: US-ACTELION-A-CH2019-199921

PATIENT
  Age: 57 Year
  Sex: Female

DRUGS (2)
  1. SILDENAFIL. [Concomitant]
     Active Substance: SILDENAFIL
  2. OPSUMIT [Suspect]
     Active Substance: MACITENTAN
     Indication: PULMONARY HYPERTENSION
     Route: 048

REACTIONS (7)
  - Vascular anastomosis [Unknown]
  - Pulmonary hypertension [Recovering/Resolving]
  - Lung disorder [Recovering/Resolving]
  - Pulmonary artery aneurysm [Recovering/Resolving]
  - Dyspnoea [Recovering/Resolving]
  - Heart and lung transplant [Unknown]
  - Pulmonary valve incompetence [Recovering/Resolving]
